FAERS Safety Report 8141017-3 (Version None)
Quarter: 2012Q1

REPORT INFORMATION
  Report Type: 
  Country: None (occurrence: None)
  Receive Date: 20120216
  Receipt Date: 20111013
  Transmission Date: 20120608
  Serious: Yes (Hospitalization, Other)
  Sender: FDA-Public Use
  Company Number: TW-ASTELLAS-2012US001772

PATIENT
  Sex: Male
  Weight: 65 kg

DRUGS (4)
  1. GEMCITABINE HYDROCHLORIDE [Suspect]
     Indication: NON-SMALL CELL LUNG CANCER
     Dosage: 2062.5 MG, DAY 1 AND DAY 8, CYCLIC
     Route: 042
     Dates: start: 20100816
  2. ERLOTINIB HYDROCHLORIDE [Suspect]
     Indication: NON-SMALL CELL LUNG CANCER
     Dosage: UNK, DAILY
     Route: 048
     Dates: start: 20100830, end: 20110223
  3. CARBOPLATIN [Suspect]
     Indication: NON-SMALL CELL LUNG CANCER
     Dosage: 407 MG, DAY 1, CYCLIC
     Route: 042
     Dates: start: 20100816
  4. ERLOTINIB HYDROCHLORIDE [Suspect]
     Dosage: UNK, DAILY
     Route: 048
     Dates: start: 20110225

REACTIONS (3)
  - PNEUMONIA ASPIRATION [None]
  - RESPIRATORY FAILURE [None]
  - CHOKING [None]
